FAERS Safety Report 20257997 (Version 3)
Quarter: 2022Q1

REPORT INFORMATION
  Report Type: Report from Study
  Country: NL (occurrence: NL)
  Receive Date: 20211230
  Receipt Date: 20220202
  Transmission Date: 20220423
  Serious: Yes (Hospitalization, Other)
  Sender: FDA-Public Use
  Company Number: NL-BRISTOL-MYERS SQUIBB COMPANY-BMS-2021-141629

PATIENT
  Age: 72 Year
  Sex: Male
  Weight: 63 kg

DRUGS (2)
  1. NIVOLUMAB [Suspect]
     Active Substance: NIVOLUMAB
     Indication: Prostate cancer metastatic
     Dosage: 216 MILLIGRAM, Q3WK  (3 MG/KG)
     Route: 042
     Dates: start: 20211103, end: 20211215
  2. IPILIMUMAB [Suspect]
     Active Substance: IPILIMUMAB
     Indication: Prostate cancer metastatic
     Dosage: 72 MILLIGRAM, Q3WK (1 MG/KG)
     Route: 042
     Dates: start: 20211103, end: 20211215

REACTIONS (4)
  - Nausea [Not Recovered/Not Resolved]
  - Diarrhoea [Not Recovered/Not Resolved]
  - Acute kidney injury [Not Recovered/Not Resolved]
  - Malignant neoplasm progression [Not Recovered/Not Resolved]

NARRATIVE: CASE EVENT DATE: 20211217
